FAERS Safety Report 4409996-5 (Version None)
Quarter: 2004Q3

REPORT INFORMATION
  Report Type: 
  Country: None (occurrence: None)
  Receive Date: 20040728
  Receipt Date: 20040721
  Transmission Date: 20050211
  Serious: Yes (Hospitalization)
  Sender: FDA-Public Use
  Company Number: IT-ROCHE-374944

PATIENT
  Age: 71 Year
  Sex: Male

DRUGS (7)
  1. ROCEPHIN [Suspect]
     Dosage: TAKEN ONCE.
     Route: 042
     Dates: start: 20040709, end: 20040709
  2. ACETYLCYSTEINE [Concomitant]
     Dosage: TAKEN TWICE.
     Route: 048
     Dates: start: 20040708, end: 20040709
  3. ENOXAPARIN SODIUM [Concomitant]
     Dosage: TAKEN THREE TIMES.
     Route: 030
     Dates: start: 20040707, end: 20040709
  4. LASIX [Concomitant]
     Dosage: TAKEN THREE TIMES.
     Route: 042
     Dates: start: 20040707, end: 20040709
  5. PANTORC [Concomitant]
     Dosage: TAKEN THREE TIMES.
     Route: 048
     Dates: start: 20040707, end: 20040709
  6. MEDROL [Concomitant]
     Dosage: TAKEN THREE TIMES. STRENGTH ALSO REPORTED AS 16 MG.
     Route: 048
     Dates: start: 20040707, end: 20040709
  7. ALLOPURINOL [Concomitant]
     Route: 048
     Dates: start: 20040707, end: 20040709

REACTIONS (1)
  - ACUTE RESPIRATORY FAILURE [None]
